FAERS Safety Report 11201835 (Version 3)
Quarter: 2016Q1

REPORT INFORMATION
  Report Type: Spontaneous
  Country: US (occurrence: US)
  Receive Date: 20150619
  Receipt Date: 20160304
  Transmission Date: 20160525
  Serious: Yes (Other)
  Sender: FDA-Public Use
  Company Number: US-BAYER-2015-325397

PATIENT
  Age: 32 Year
  Sex: Female
  Weight: 90.7 kg

DRUGS (14)
  1. MIRENA [Suspect]
     Active Substance: LEVONORGESTREL
     Indication: CONTRACEPTION
     Dosage: 20 MCG/24HR, CONT
     Route: 015
     Dates: start: 200806
  2. FERROUS SULFATE [Concomitant]
     Active Substance: FERROUS SULFATE\FERROUS SULFATE, DRIED
  3. AMBIEN [Suspect]
     Active Substance: ZOLPIDEM TARTRATE
     Indication: SLEEP DISORDER
  4. PRENATAL VITAMINS [Concomitant]
     Active Substance: VITAMINS
  5. KEFLEX [Concomitant]
     Active Substance: CEPHALEXIN
  6. STADOL [Concomitant]
     Active Substance: BUTORPHANOL TARTRATE
     Indication: PAIN
  7. CLEOCIN [Concomitant]
     Active Substance: CLINDAMYCIN PHOSPHATE
  8. MOTRIN [Concomitant]
     Active Substance: IBUPROFEN
  9. DEPO-PROVERA [Concomitant]
     Active Substance: MEDROXYPROGESTERONE ACETATE
  10. VICODIN [Concomitant]
     Active Substance: ACETAMINOPHEN\HYDROCODONE BITARTRATE
     Indication: PAIN
  11. PENICILLIN NOS [Concomitant]
     Active Substance: PENICILLIN
  12. PHENERGAN [Concomitant]
     Active Substance: PROMETHAZINE HYDROCHLORIDE
     Indication: PAIN
  13. DARVOCET [Concomitant]
     Active Substance: ACETAMINOPHEN\PROPOXYPHENE HYDROCHLORIDE
     Indication: PAIN
  14. CLINDAMYCIN [Concomitant]
     Active Substance: CLINDAMYCIN\CLINDAMYCIN PHOSPHATE

REACTIONS (19)
  - Drug ineffective [None]
  - Injury [None]
  - Medical device pain [None]
  - Nerve compression [None]
  - Device breakage [None]
  - Pain in extremity [None]
  - Device dislocation [None]
  - Pregnancy with contraceptive device [None]
  - Joint injury [None]
  - Crying [None]
  - Pain [None]
  - Device use error [None]
  - Arthralgia [None]
  - Anxiety [Not Recovered/Not Resolved]
  - Depression [Not Recovered/Not Resolved]
  - Genital haemorrhage [None]
  - Abdominal pain lower [None]
  - Procedural pain [None]
  - Device difficult to use [None]

NARRATIVE: CASE EVENT DATE: 200806
